FAERS Safety Report 20050680 (Version 1)
Quarter: 2021Q4

REPORT INFORMATION
  Report Type: Spontaneous
  Country: CZ (occurrence: CZ)
  Receive Date: 20211109
  Receipt Date: 20211109
  Transmission Date: 20220303
  Serious: Yes (Other)
  Sender: FDA-Public Use
  Company Number: None

PATIENT

DRUGS (1)
  1. EYLEA [Suspect]
     Active Substance: AFLIBERCEPT
     Indication: Product used for unknown indication
     Dosage: UNKNOWN TOTAL NUMBER OF DOSES OF EYLEA
     Route: 031

REACTIONS (8)
  - Conjunctivitis [Unknown]
  - Eye pruritus [Unknown]
  - Chills [Unknown]
  - Keratitis [Unknown]
  - Pruritus [Unknown]
  - Alopecia [Unknown]
  - Headache [Unknown]
  - Fatigue [Recovering/Resolving]

NARRATIVE: CASE EVENT DATE: 20210830
